FAERS Safety Report 12531686 (Version 2)
Quarter: 2016Q3

REPORT INFORMATION
  Report Type: Spontaneous
  Country: US (occurrence: US)
  Receive Date: 20160706
  Receipt Date: 20160725
  Transmission Date: 20161109
  Serious: Yes (Hospitalization, Other)
  Sender: FDA-Public Use
  Company Number: US-TAKEDA-2016TUS011380

PATIENT

DRUGS (4)
  1. ENTOCORT [Concomitant]
     Active Substance: BUDESONIDE
     Dosage: UNK
  2. BENADRYL [Concomitant]
     Active Substance: DIPHENHYDRAMINE HYDROCHLORIDE
     Indication: PREMEDICATION
     Dosage: UNK
  3. PREDNISONE. [Concomitant]
     Active Substance: PREDNISONE
     Indication: PREMEDICATION
     Dosage: UNK
  4. ENTYVIO [Suspect]
     Active Substance: VEDOLIZUMAB
     Indication: PRODUCT USED FOR UNKNOWN INDICATION
     Dosage: UNK
     Route: 042

REACTIONS (14)
  - Nausea [Unknown]
  - Pain in extremity [Unknown]
  - Hypersensitivity [Recovering/Resolving]
  - Head discomfort [Unknown]
  - Pruritus [Unknown]
  - Malaise [Unknown]
  - Flushing [Unknown]
  - Arthralgia [Unknown]
  - Anaphylactic reaction [Unknown]
  - Thrombosis [Unknown]
  - Headache [Unknown]
  - Back pain [Unknown]
  - Condition aggravated [Unknown]
  - Rash macular [Unknown]
